FAERS Safety Report 6174087-2 (Version None)
Quarter: 2009Q2

REPORT INFORMATION
  Report Type: 
  Country: None (occurrence: None)
  Receive Date: 20090429
  Receipt Date: 20090429
  Transmission Date: 20091009
  Serious: No
  Sender: FDA-Public Use
  Company Number: None

PATIENT
  Age: 7 Year
  Sex: Male
  Weight: 34.0198 kg

DRUGS (2)
  1. SINGULAIR [Suspect]
     Indication: ASTHMA
     Dosage: 1- 5MG CHEWABLE 1 TIME AT NIGHT
     Dates: start: 20090401, end: 20090428
  2. SINGULAIR [Suspect]
     Indication: MULTIPLE ALLERGIES
     Dosage: 1- 5MG CHEWABLE 1 TIME AT NIGHT
     Dates: start: 20090401, end: 20090428

REACTIONS (10)
  - ABDOMINAL DISCOMFORT [None]
  - AGGRESSION [None]
  - BRUXISM [None]
  - DEPRESSION [None]
  - EXCESSIVE EYE BLINKING [None]
  - GINGIVAL BLEEDING [None]
  - PARAESTHESIA [None]
  - TIC [None]
  - VIRAL INFECTION [None]
  - VOMITING [None]
